FAERS Safety Report 5826444-9 (Version None)
Quarter: 2008Q3

REPORT INFORMATION
  Report Type: 
  Country: None (occurrence: None)
  Receive Date: 20080729
  Receipt Date: 20080717
  Transmission Date: 20090109
  Serious: Yes (Other)
  Sender: FDA-Public Use
  Company Number: JP-PFIZER INC-2008062485

PATIENT
  Age: 60 Year
  Sex: Female

DRUGS (8)
  1. CHANTIX [Suspect]
  2. SERETIDE MITE [Concomitant]
  3. SPIRIVA [Concomitant]
  4. ACETYLSALICYLIC ACID SRT [Concomitant]
  5. MONTELUKAST SODIUM [Concomitant]
  6. MYSLEE [Concomitant]
  7. DEPAS [Concomitant]
  8. THEOLONG [Concomitant]

REACTIONS (6)
  - GINGIVAL INFECTION [None]
  - PAIN IN JAW [None]
  - PERIODONTAL DISEASE [None]
  - PYREXIA [None]
  - SKIN DISCOLOURATION [None]
  - SWELLING FACE [None]
